FAERS Safety Report 20849661 (Version 1)
Quarter: 2022Q2

REPORT INFORMATION
  Report Type: Report from Study
  Country: IT (occurrence: IT)
  Receive Date: 20220519
  Receipt Date: 20220519
  Transmission Date: 20220720
  Serious: Yes (Hospitalization)
  Sender: FDA-Public Use
  Company Number: None

PATIENT
  Age: 13 Year
  Sex: Male
  Weight: 59 kg

DRUGS (3)
  1. FLUDARABINE [Suspect]
     Active Substance: FLUDARABINE PHOSPHATE
     Indication: Acute myeloid leukaemia
     Dosage: UNIT DOSE: 49 MG, FREQUENCY TIME : 1 CYCLICAL, DURATION : 4 DAYS
     Route: 042
     Dates: start: 20220222, end: 20220226
  2. CYTARABINE [Suspect]
     Active Substance: CYTARABINE
     Indication: Acute myeloid leukaemia
     Dosage: CITARABINA HIKMA 2 G/20ML , UNIT DOSE: 3260 MG, FREQUENCY TIME : 1 DAY, DURATION : 6 DAY
     Route: 042
     Dates: start: 20220222, end: 20220228
  3. DOXORUBICIN [Concomitant]
     Active Substance: DOXORUBICIN
     Indication: Acute myeloid leukaemia
     Dosage: UNIT DOSE: 81.5 MG, MYOCET 50 MG POWDER, DISPERSION AND SOLVENT FOR CONCENTRATE FOR DISPER, DURATION
     Route: 042
     Dates: start: 20220222, end: 20220226

REACTIONS (11)
  - Cardiac murmur [Recovering/Resolving]
  - Pyrexia [Recovering/Resolving]
  - Pancytopenia [Recovering/Resolving]
  - Mouth haemorrhage [Recovering/Resolving]
  - Stomatitis [Recovering/Resolving]
  - Conjunctival haemorrhage [Recovering/Resolving]
  - Photophobia [Recovering/Resolving]
  - Abdominal pain [Recovering/Resolving]
  - Vomiting [Recovering/Resolving]
  - Diarrhoea [Recovering/Resolving]
  - Eye irritation [Recovering/Resolving]

NARRATIVE: CASE EVENT DATE: 20220222
